FAERS Safety Report 8979201 (Version 1)
Quarter: 2012Q4

REPORT INFORMATION
  Report Type: Report from Study
  Country: IR (occurrence: IR)
  Receive Date: 20121221
  Receipt Date: 20121221
  Transmission Date: 20130627
  Serious: Yes (Death)
  Sender: FDA-Public Use
  Company Number: IR-ABBOTT-12P-080-0969265-00

PATIENT
  Age: 65 Year
  Sex: Male
  Weight: 98 kg

DRUGS (3)
  1. HUMIRA 40 MG/ 0.8 ML PRE-FILLED SYRINGE [Suspect]
     Indication: ANKYLOSING SPONDYLITIS
     Route: 058
     Dates: start: 20111009, end: 20121010
  2. ASA [Concomitant]
     Indication: CARDIAC DISORDER
     Dosage: 80mg daily
     Route: 048
  3. SIMVASTATIN [Concomitant]
     Indication: HYPERLIPIDAEMIA
     Dosage: 40mg daily
     Route: 048

REACTIONS (2)
  - Myocardial infarction [Fatal]
  - Chest pain [Recovered/Resolved]
